FAERS Safety Report 16323684 (Version 3)
Quarter: 2019Q2

REPORT INFORMATION
  Report Type: Spontaneous
  Country: JP (occurrence: JP)
  Receive Date: 20190517
  Receipt Date: 20190610
  Transmission Date: 20190711
  Serious: Yes (Other)
  Sender: FDA-Public Use
  Company Number: JP-GLAXOSMITHKLINE-JP2019JPN086973

PATIENT
  Sex: Male

DRUGS (2)
  1. GLANATEC OPHTHALMIC SOLUTION [Concomitant]
     Indication: GLAUCOMA
     Dosage: UNK
  2. AVOLVE [Suspect]
     Active Substance: DUTASTERIDE
     Dosage: 0.5 MG, QD
     Route: 048
     Dates: start: 201405

REACTIONS (1)
  - Blindness unilateral [Unknown]
